FAERS Safety Report 8271705-X (Version None)
Quarter: 2012Q2

REPORT INFORMATION
  Report Type: 
  Country: None (occurrence: None)
  Receive Date: 20120410
  Receipt Date: 20120404
  Transmission Date: 20120825
  Serious: No
  Sender: FDA-Public Use
  Company Number: US-BAYER-2012-034115

PATIENT
  Age: 90 Year
  Sex: Female
  Weight: 56 kg

DRUGS (3)
  1. ALEVE (CAPLET) [Suspect]
     Indication: ARTHRITIS
  2. LISINOPRIL [Concomitant]
  3. ASPIRIN [Concomitant]
     Dosage: UNK
     Route: 048
     Dates: start: 20120402

REACTIONS (1)
  - INSOMNIA [None]
